FAERS Safety Report 4424252-7 (Version None)
Quarter: 2004Q3

REPORT INFORMATION
  Report Type: 
  Country: None (occurrence: None)
  Receive Date: 20040810
  Receipt Date: 20040810
  Transmission Date: 20050211
  Serious: Yes (Other)
  Sender: FDA-Public Use
  Company Number: None

PATIENT
  Age: 50 Year
  Sex: Female
  Weight: 81.6475 kg

DRUGS (3)
  1. VIOXX [Suspect]
     Indication: OSTEOARTHRITIS
     Dosage: 1 TAB DAILY
     Dates: start: 20040629
  2. VIOXX [Suspect]
     Indication: OSTEOARTHRITIS
     Dosage: 1 TAB DAILY
     Dates: start: 20040702
  3. VIOXX [Suspect]
     Indication: OSTEOARTHRITIS
     Dosage: 1 TAB DAILY
     Dates: start: 20040707

REACTIONS (5)
  - EYE SWELLING [None]
  - HEART RATE INCREASED [None]
  - PALPITATIONS [None]
  - RASH [None]
  - THROAT TIGHTNESS [None]
